FAERS Safety Report 18517768 (Version 1)
Quarter: 2020Q4

REPORT INFORMATION
  Report Type: Spontaneous
  Country: IQ (occurrence: IQ)
  Receive Date: 20201118
  Receipt Date: 20201118
  Transmission Date: 20210114
  Serious: Yes (Hospitalization, Other)
  Sender: FDA-Public Use
  Company Number: NVSC2020IQ304344

PATIENT

DRUGS (1)
  1. TEGRETOL [Suspect]
     Active Substance: CARBAMAZEPINE
     Indication: EPILEPSY
     Dosage: 15 DF, APPROX 3 G
     Route: 065

REACTIONS (8)
  - Tachycardia [Unknown]
  - Hypopnoea [Unknown]
  - Feeling cold [Unknown]
  - Dysarthria [Unknown]
  - Suicide attempt [Unknown]
  - Hyperhidrosis [Unknown]
  - Depressed level of consciousness [Unknown]
  - Hallucination [Unknown]
